FAERS Safety Report 18437719 (Version 2)
Quarter: 2020Q4

REPORT INFORMATION
  Report Type: Spontaneous
  Country: US (occurrence: US)
  Receive Date: 20201028
  Receipt Date: 20201120
  Transmission Date: 20210114
  Serious: Yes (Other)
  Sender: FDA-Public Use
  Company Number: US-PFIZER INC-2020416439

PATIENT
  Age: 41 Year
  Sex: Female

DRUGS (4)
  1. VEMURAFENIB. [Suspect]
     Active Substance: VEMURAFENIB
     Indication: MALIGNANT MELANOMA STAGE IV
     Dosage: 2.4 MG
  2. VEMURAFENIB. [Suspect]
     Active Substance: VEMURAFENIB
     Dosage: UNK (36MG, DAY 9)
  3. ENCORAFENIB [Suspect]
     Active Substance: ENCORAFENIB
     Indication: MALIGNANT MELANOMA STAGE IV
     Dosage: UNK
  4. BINIMETINIB [Suspect]
     Active Substance: BINIMETINIB
     Indication: MALIGNANT MELANOMA STAGE IV
     Dosage: UNK

REACTIONS (1)
  - Drug reaction with eosinophilia and systemic symptoms [Recovered/Resolved]
